FAERS Safety Report 8277832-5 (Version None)
Quarter: 2012Q2

REPORT INFORMATION
  Report Type: 
  Country: None (occurrence: None)
  Receive Date: 20120412
  Receipt Date: 20120403
  Transmission Date: 20120825
  Serious: Yes (Death)
  Sender: FDA-Public Use
  Company Number: US-MYLANLABS-2011S1014897

PATIENT
  Age: 60 Year
  Sex: Female
  Weight: 77.11 kg

DRUGS (21)
  1. NOVOLOG [Concomitant]
     Dosage: UNITS/ML
     Route: 058
  2. PAROXETINE [Concomitant]
  3. ASPIRIN [Concomitant]
  4. BUPROPION HYDROCHLORIDE [Concomitant]
  5. NITROGLYCERIN [Concomitant]
     Dosage: PUMP
  6. FENOFIBRATE [Concomitant]
     Indication: BLOOD TRIGLYCERIDES
  7. NEXIUM [Concomitant]
  8. PROAIR HFA [Concomitant]
     Dosage: ONE TO TWO PUFFS EVERY 4-6 HOURS AS NEEDED
     Route: 055
  9. WARFARIN SODIUM [Concomitant]
  10. ADVAIR DISKUS 100/50 [Concomitant]
     Dosage: 250/50 UG/DOSE
     Route: 055
  11. ALPRAZOLAM [Concomitant]
  12. BENAZEPRIL HYDROCHLORIDE [Concomitant]
  13. GABAPENTIN [Concomitant]
  14. FUROSEMIDE [Concomitant]
  15. MELOXICAM [Concomitant]
  16. VYTORIN [Concomitant]
     Dosage: 10-80MG
  17. FENTANYL-100 [Suspect]
     Indication: BACK PAIN
     Dosage: CHANGE Q3D
     Route: 062
  18. FELDENE [Concomitant]
  19. LANTUS [Concomitant]
     Dosage: UNITS/ML
     Route: 058
  20. METOPROLOL SUCCINATE [Concomitant]
  21. OXYCODONE/ACETAMINOPHEN [Concomitant]
     Indication: PAIN
     Dosage: 10MG/325MG 4 TIMES DAILY AS NEEDED

REACTIONS (1)
  - TOXICITY TO VARIOUS AGENTS [None]
